FAERS Safety Report 5722104-3 (Version None)
Quarter: 2008Q2

REPORT INFORMATION
  Report Type: 
  Country: None (occurrence: None)
  Receive Date: 20080429
  Receipt Date: 20080422
  Transmission Date: 20081010
  Serious: Yes (Hospitalization)
  Sender: FDA-Public Use
  Company Number: US-ELI_LILLY_AND_COMPANY-US200801003032

PATIENT
  Sex: Female
  Weight: 105.67 kg

DRUGS (12)
  1. BYETTA [Suspect]
     Indication: DIABETES MELLITUS
     Dosage: 5 UG, 2/D
     Route: 058
     Dates: start: 20070701, end: 20070801
  2. METFORMIN HCL [Concomitant]
     Dosage: 1000 MG, 2/D
     Route: 048
  3. LISINOPRIL [Concomitant]
     Dosage: 20 MG, DAILY (1/D)
     Route: 048
  4. TOPROL-XL [Concomitant]
     Dosage: 200 MG, DAILY (1/D)
     Route: 048
  5. NEURONTIN [Concomitant]
     Dosage: 600 MG, EACH MORNING
  6. NEURONTIN [Concomitant]
     Dosage: 300 MG, EACH EVENING
  7. LIPITOR [Concomitant]
     Dosage: 10 MG, DAILY (1/D)
     Route: 048
  8. PLAVIX [Concomitant]
     Dosage: 75 MG, DAILY (1/D)
     Route: 048
  9. ASPIRIN [Concomitant]
     Dosage: 325 MG, DAILY (1/D)
     Route: 048
  10. PAROXETINE HCL [Concomitant]
     Dosage: 30 MG, DAILY (1/D)
     Route: 048
  11. PREVACID [Concomitant]
     Dosage: 30 MG, 2/D
     Route: 048
  12. NIASPAN [Concomitant]
     Dosage: 500 MG, UNKNOWN
     Route: 065

REACTIONS (2)
  - PANCREATITIS ACUTE [None]
  - WEIGHT INCREASED [None]
